FAERS Safety Report 7266708-8 (Version None)
Quarter: 2011Q1

REPORT INFORMATION
  Report Type: 
  Country: None (occurrence: None)
  Receive Date: 20110201
  Receipt Date: 20110119
  Transmission Date: 20110831
  Serious: Yes (Hospitalization)
  Sender: FDA-Public Use
  Company Number: US-BIOGENIDEC-2010BI028539

PATIENT
  Age: 44 Year
  Sex: Female

DRUGS (3)
  1. AVONEX [Concomitant]
     Indication: MULTIPLE SCLEROSIS
     Route: 030
  2. TYSABRI [Suspect]
     Indication: MULTIPLE SCLEROSIS
     Route: 042
     Dates: start: 20080214, end: 20091203
  3. TYSABRI [Suspect]
     Route: 042
     Dates: start: 20100723

REACTIONS (5)
  - AMNESIA [None]
  - INSOMNIA [None]
  - INFECTION [None]
  - FEELING ABNORMAL [None]
  - EYE DISORDER [None]
